FAERS Safety Report 9766543 (Version 1)
Quarter: 2013Q4

REPORT INFORMATION
  Report Type: Spontaneous
  Country: US (occurrence: US)
  Receive Date: 20131217
  Receipt Date: 20131217
  Transmission Date: 20140711
  Serious: No
  Sender: FDA-Public Use
  Company Number: US-BIOGENIDEC-2013BI118678

PATIENT
  Sex: Male

DRUGS (8)
  1. TECFIDERA [Suspect]
     Indication: MULTIPLE SCLEROSIS
     Route: 048
     Dates: start: 201310
  2. D2000 ULTRA STRENGTH [Concomitant]
  3. CITALOPRAM HYDROBROMIDE [Concomitant]
  4. HYDROCHLOROTHIAZIDE [Concomitant]
  5. LANSOPRAZOLE [Concomitant]
  6. SIMVASTATIN [Concomitant]
  7. EXFORGE [Concomitant]
  8. AMPYRA [Concomitant]

REACTIONS (2)
  - Asthenia [Unknown]
  - Fatigue [Unknown]
